FAERS Safety Report 7132455-6 (Version None)
Quarter: 2010Q4

REPORT INFORMATION
  Report Type: 
  Country: None (occurrence: None)
  Receive Date: 20101130
  Receipt Date: 20101130
  Transmission Date: 20110411
  Serious: Yes (Other)
  Sender: FDA-Public Use
  Company Number: None

PATIENT
  Age: 55 Year
  Sex: Female
  Weight: 68.0396 kg

DRUGS (1)
  1. ACTONEL [Suspect]
     Indication: OSTEOPENIA
     Dosage: TWO MONTHLY PO
     Route: 048
     Dates: start: 20100927, end: 20101027

REACTIONS (4)
  - ARTHRALGIA [None]
  - MOBILITY DECREASED [None]
  - MYALGIA [None]
  - SLEEP DISORDER [None]
